FAERS Safety Report 7245397-2 (Version None)
Quarter: 2011Q1

REPORT INFORMATION
  Report Type: 
  Country: None (occurrence: None)
  Receive Date: 20110126
  Receipt Date: 20110124
  Transmission Date: 20110831
  Serious: Yes (Hospitalization)
  Sender: FDA-Public Use
  Company Number: JP-PFIZER INC-2008084911

PATIENT
  Age: 61 Year
  Sex: Female
  Weight: 41 kg

DRUGS (20)
  1. BROTIZOLAM [Concomitant]
     Route: 048
  2. FLUOROURACIL [Suspect]
     Indication: RECTAL CANCER
     Dosage: 420 MG, 1 EVERY 2 WEEKS
     Route: 040
     Dates: start: 20080630, end: 20080922
  3. OXYCODONE HCL [Concomitant]
     Dosage: UNK
     Route: 048
     Dates: start: 20081008, end: 20081008
  4. FLUOROURACIL [Suspect]
     Dosage: 2550 MG, 1 EVERY 2 WEEKS
     Route: 041
     Dates: start: 20080630, end: 20080924
  5. IRINOTECAN HCL [Suspect]
     Indication: RECTAL CANCER
     Dosage: 195 MG, 1 EVERY 2 WEEKS
     Route: 042
     Dates: start: 20080630, end: 20080922
  6. REBAMIPIDE [Concomitant]
     Route: 048
     Dates: end: 20081008
  7. PYRIDOXAL PHOSPHATE [Concomitant]
     Route: 048
     Dates: start: 20080828, end: 20081008
  8. FOLINIC ACID [Suspect]
     Indication: RECTAL CANCER
     Dosage: 210 MG, 1 EVERY 2 WEEKS
     Route: 042
     Dates: start: 20080630, end: 20080922
  9. ZOLPIDEM TARTRATE [Concomitant]
     Route: 048
  10. BETAMETHASONE VALERATE [Concomitant]
     Route: 061
     Dates: start: 20080908, end: 20081008
  11. SUNITINIB MALATE [Suspect]
     Indication: RECTAL CANCER
     Dosage: 25 MG, 1X/DAY
     Route: 048
     Dates: start: 20080630, end: 20081001
  12. LOXOPROFEN SODIUM [Concomitant]
     Route: 048
     Dates: end: 20081008
  13. MAGNESIUM OXIDE [Concomitant]
     Route: 048
  14. STREPTOCOCCUS FAECALIS [Concomitant]
     Route: 048
     Dates: start: 20080714, end: 20081008
  15. DIMETHYL ISOPROPYLAZULENE [Concomitant]
     Route: 048
     Dates: start: 20080901, end: 20081008
  16. DEXAMETHASONE SODIUM PHOSPHATE [Concomitant]
     Route: 042
     Dates: start: 20080630, end: 20080922
  17. KENALOG [Concomitant]
     Dosage: UNK
     Route: 049
     Dates: start: 20080809, end: 20081008
  18. LIDOCAINE HYDROCHLORIDE IN PLASTIC CONTAINER [Concomitant]
     Dosage: UNK
     Route: 048
     Dates: start: 20080901, end: 20081008
  19. AFTACH [Concomitant]
     Dosage: UNK
     Route: 049
     Dates: start: 20080828, end: 20081008
  20. GRANISETRON HYDROCHLORIDE [Concomitant]
     Route: 042
     Dates: start: 20080630, end: 20080922

REACTIONS (1)
  - INTESTINAL OBSTRUCTION [None]
